FAERS Safety Report 8580311-9 (Version None)
Quarter: 2012Q3

REPORT INFORMATION
  Report Type: 
  Country: None (occurrence: None)
  Receive Date: 20120808
  Receipt Date: 20120802
  Transmission Date: 20120928
  Serious: Yes (Death)
  Sender: FDA-Public Use
  Company Number: US-PFIZER INC-2012190845

PATIENT
  Age: 30 Year
  Sex: Female

DRUGS (3)
  1. XANAX [Suspect]
     Indication: DEPRESSION
     Dosage: 1 MG, 3X/DAY
  2. XANAX [Suspect]
     Indication: PANIC ATTACK
  3. LYRICA [Suspect]
     Dosage: 150 MG, 3X/DAY

REACTIONS (1)
  - DEATH [None]
